FAERS Safety Report 9421980 (Version 1)
Quarter: 2013Q3

REPORT INFORMATION
  Report Type: Spontaneous
  Country: TR (occurrence: TR)
  Receive Date: 20130726
  Receipt Date: 20130726
  Transmission Date: 20140515
  Serious: Yes (Death)
  Sender: FDA-Public Use
  Company Number: TR-GENZYME-FLUD-1001852

PATIENT
  Age: 52 Year
  Sex: Female

DRUGS (8)
  1. FLUDARA [Suspect]
     Indication: CHRONIC LYMPHOCYTIC LEUKAEMIA
     Dosage: 20 MG/M2, DAYS 3-5 OF EACH 4-WEEK COURSE (06 COURSES)
     Route: 065
     Dates: start: 201007, end: 201012
  2. CAMPATH [Suspect]
     Indication: CHRONIC LYMPHOCYTIC LEUKAEMIA
     Dosage: 30 MG, DAYS 1,3 AND 5 OF EACH 4-WEEK COURSE (06 COURSES)
     Route: 065
     Dates: start: 201007, end: 201012
  3. CYCLOPHOSPHAMIDE [Suspect]
     Indication: CHRONIC LYMPHOCYTIC LEUKAEMIA
     Dosage: 200 MG/M2, DAYS 3-5 OF EACH 4-WEEK COURSE (06 COURSES)
     Route: 065
     Dates: start: 201007, end: 201012
  4. RITUXIMAB [Suspect]
     Indication: CHRONIC LYMPHOCYTIC LEUKAEMIA
     Dosage: 375-500 MG/M2, DAY 2 OF EACH 4-WEEK COURSE (06 COURSES)
     Route: 065
     Dates: start: 201007, end: 201012
  5. CYCLOSPORINE [Concomitant]
     Indication: PROPHYLAXIS AGAINST GRAFT VERSUS HOST DISEASE
     Dosage: UNK
     Route: 065
  6. METHOTREXATE [Concomitant]
     Indication: PROPHYLAXIS AGAINST GRAFT VERSUS HOST DISEASE
     Dosage: UNK
     Route: 065
  7. METHYLPREDNISOLONE [Concomitant]
     Indication: ACUTE GRAFT VERSUS HOST DISEASE
     Dosage: 1.6 MG/KG, QD
     Route: 065
  8. GANCICLOVIR [Concomitant]
     Indication: ACUTE GRAFT VERSUS HOST DISEASE
     Dosage: UNK
     Route: 065

REACTIONS (1)
  - Richter^s syndrome [Fatal]
